FAERS Safety Report 20876352 (Version 5)
Quarter: 2022Q3

REPORT INFORMATION
  Report Type: Report from Study
  Country: US (occurrence: US)
  Receive Date: 20220526
  Receipt Date: 20220826
  Transmission Date: 20221027
  Serious: Yes (Hospitalization)
  Sender: FDA-Public Use
  Company Number: US-INSMED, INC.-2021-09070-US

PATIENT
  Sex: Female
  Weight: 43 kg

DRUGS (3)
  1. ARIKAYCE [Suspect]
     Active Substance: AMIKACIN
     Indication: Mycobacterium abscessus infection
     Dosage: 590 MILLIGRAM, QD
     Route: 055
     Dates: start: 20210118, end: 20210818
  2. ARIKAYCE [Suspect]
     Active Substance: AMIKACIN
     Dosage: 590 MILLIGRAM, QD
     Route: 055
     Dates: start: 20220112, end: 2022
  3. TIGECYCLINE [Concomitant]
     Active Substance: TIGECYCLINE
     Indication: Product used for unknown indication
     Dosage: UNK, QD
     Route: 042

REACTIONS (17)
  - Cystic fibrosis [Not Recovered/Not Resolved]
  - Infection [Unknown]
  - Drug resistance [Unknown]
  - Foaming at mouth [Not Recovered/Not Resolved]
  - Oral mucosal exfoliation [Unknown]
  - Lower respiratory tract congestion [Unknown]
  - Heart rate increased [Not Recovered/Not Resolved]
  - Dysgeusia [Unknown]
  - Productive cough [Not Recovered/Not Resolved]
  - Chest discomfort [Unknown]
  - Dry mouth [Not Recovered/Not Resolved]
  - Cough [Unknown]
  - Fatigue [Not Recovered/Not Resolved]
  - Dyspnoea [Not Recovered/Not Resolved]
  - Product dose omission issue [Unknown]
  - Drug ineffective [Unknown]
  - Therapy interrupted [None]

NARRATIVE: CASE EVENT DATE: 20210101
